FAERS Safety Report 10934245 (Version 1)
Quarter: 2015Q1

REPORT INFORMATION
  Report Type: Report from Study
  Country: DE (occurrence: DE)
  Receive Date: 20150320
  Receipt Date: 20150320
  Transmission Date: 20150721
  Serious: Yes (Hospitalization, Disabling, Other)
  Sender: FDA-Public Use
  Company Number: DE-SA-2015SA022978

PATIENT
  Age: 65 Year
  Sex: Female
  Weight: 51 kg

DRUGS (9)
  1. IRINOTECAN [Concomitant]
     Active Substance: IRINOTECAN
     Dates: start: 20150126, end: 20150126
  2. DIURETICS [Concomitant]
     Active Substance: UNSPECIFIED INGREDIENT
  3. IRINOTECAN [Concomitant]
     Active Substance: IRINOTECAN
     Dates: start: 20150218, end: 20150218
  4. FOLINIC ACID [Concomitant]
     Active Substance: LEUCOVORIN
     Dates: start: 20150218, end: 20150218
  5. ZALTRAP [Suspect]
     Active Substance: ZIV-AFLIBERCEPT
     Indication: COLORECTAL CANCER METASTATIC
     Route: 042
     Dates: start: 20150218, end: 20150218
  6. 5-FU [Concomitant]
     Active Substance: FLUOROURACIL
     Route: 065
     Dates: start: 20150126, end: 20150126
  7. 5-FU [Concomitant]
     Active Substance: FLUOROURACIL
     Route: 065
     Dates: start: 20150218, end: 20150218
  8. FOLINIC ACID [Concomitant]
     Active Substance: LEUCOVORIN
     Dates: start: 20150126, end: 20150126
  9. ZALTRAP [Suspect]
     Active Substance: ZIV-AFLIBERCEPT
     Indication: COLORECTAL CANCER METASTATIC
     Route: 042
     Dates: start: 20150126, end: 20150126

REACTIONS (7)
  - Fall [Unknown]
  - Infection [Unknown]
  - Dyspnoea at rest [Unknown]
  - Spinal fracture [Unknown]
  - Back pain [Unknown]
  - Cardiac failure [Recovered/Resolved]
  - Bronchitis [Recovered/Resolved]

NARRATIVE: CASE EVENT DATE: 20150220
